FAERS Safety Report 16303361 (Version 3)
Quarter: 2019Q2

REPORT INFORMATION
  Report Type: Report from Study
  Country: US (occurrence: US)
  Receive Date: 20190513
  Receipt Date: 20190619
  Transmission Date: 20190711
  Serious: Yes (Hospitalization, Other)
  Sender: FDA-Public Use
  Company Number: US-SA-2019SA127586

PATIENT
  Age: 4 Year
  Sex: Male

DRUGS (19)
  1. CHOLECALCIFEROL [Concomitant]
     Active Substance: CHOLECALCIFEROL
     Dosage: 0.5 ML, BID; G-TUBE
     Dates: start: 20180327
  2. IPRATROPIUM [IPRATROPIUM BROMIDE] [Concomitant]
     Dosage: 4 SPRAY; BUCCAL
     Dates: start: 20180710
  3. MULTIVITAMIN [VITAMINS NOS] [Concomitant]
     Dosage: 1 DF, QD
     Route: 048
     Dates: start: 20160915
  4. IPRATROPIUM [IPRATROPIUM BROMIDE] [Concomitant]
     Dosage: 2 SPRAY; EACH NOSTRIL
     Dates: start: 20151119
  5. ALGLUCOSIDASE ALFA [Suspect]
     Active Substance: ALGLUCOSIDASE ALFA
     Indication: GLYCOGEN STORAGE DISEASE TYPE II
     Dosage: DOSE: 500, FREQUENCY: Q1
     Route: 041
     Dates: start: 20150122
  6. NYSTATIN. [Concomitant]
     Active Substance: NYSTATIN
     Dosage: 1 APPL, TID
     Route: 061
     Dates: start: 20181220
  7. DIPHENHYDRAMINE. [Concomitant]
     Active Substance: DIPHENHYDRAMINE
     Dosage: 5 ML; QHS
     Route: 048
     Dates: start: 20180612
  8. VITAMIN A + D [RETINOL;VITAMIN D NOS] [Concomitant]
     Dosage: 1 APPL, BID
     Route: 061
     Dates: start: 20150912
  9. ALGLUCOSIDASE ALFA [Suspect]
     Active Substance: ALGLUCOSIDASE ALFA
     Dosage: 500 MG; Q7DAYS
     Route: 041
     Dates: start: 20180131
  10. BACITRACIN [BACITRACIN ZINC] [Concomitant]
     Dosage: UNK UNK, TID
     Route: 061
     Dates: start: 20150922
  11. MELATONIN [Concomitant]
     Active Substance: MELATONIN
     Dosage: 1 MG; G-TUBE; QHS
     Dates: start: 20180626
  12. SENNA [SENNA SPP.] [Concomitant]
     Dosage: 5 ML, BID; G-TUBE
     Dates: start: 20181220
  13. CETIRIZINE [Concomitant]
     Active Substance: CETIRIZINE HYDROCHLORIDE
     Dosage: 2.5 ML, PRN; G-TUBE; DAILY
     Dates: start: 20160519
  14. FLUTICASONE. [Concomitant]
     Active Substance: FLUTICASONE
     Dosage: 2 DF, BID
     Route: 055
     Dates: start: 20160509
  15. GLYCERIN [GLYCEROL] [Concomitant]
     Dosage: 0.5 SUPP; PR; BID
     Dates: start: 20150922
  16. LIDOCAINE. [Concomitant]
     Active Substance: LIDOCAINE
     Dosage: 1 APPL, 1X
     Route: 061
     Dates: start: 20150923
  17. POLYETHYLENE GLYCOL 3350. [Concomitant]
     Active Substance: POLYETHYLENE GLYCOL 3350
     Dosage: 8.5 G, QD; G-TUBE
     Dates: start: 20181220
  18. SCOPOLAMINE [HYOSCINE] [Concomitant]
     Active Substance: SCOPOLAMINE
     Dosage: 1 PATCH Q72H
     Route: 062
     Dates: start: 20160509
  19. SODIUM CHLORIDE. [Concomitant]
     Active Substance: SODIUM CHLORIDE
     Dosage: 4 ML, QID
     Route: 055
     Dates: start: 20181220

REACTIONS (26)
  - Pyrexia [Recovered/Resolved]
  - Respiratory arrest [Unknown]
  - Tracheal haemorrhage [Unknown]
  - Hypercapnia [Unknown]
  - Thrombosis [Unknown]
  - Tachycardia [Unknown]
  - Heart rate decreased [Unknown]
  - Hypotension [Unknown]
  - Seizure [Unknown]
  - Chronic respiratory failure [Unknown]
  - Thrombocytopenia [Unknown]
  - Gastrostomy [Unknown]
  - Malaise [Unknown]
  - AST/ALT ratio [Unknown]
  - Hypoxia [Unknown]
  - Generalised oedema [Not Recovered/Not Resolved]
  - Breath sounds abnormal [Unknown]
  - Anaemia [Unknown]
  - Cardiac arrest [Unknown]
  - Cerebrovascular accident [Unknown]
  - Hypothermia [Recovering/Resolving]
  - Brain injury [Unknown]
  - Septic shock [Unknown]
  - Blood thyroid stimulating hormone increased [Unknown]
  - Hypertrophic cardiomyopathy [Unknown]
  - Oedema peripheral [Unknown]

NARRATIVE: CASE EVENT DATE: 201812
